FAERS Safety Report 9868943 (Version 1)
Quarter: 2014Q1

REPORT INFORMATION
  Report Type: Report from Study
  Country: US (occurrence: US)
  Receive Date: 20140205
  Receipt Date: 20140205
  Transmission Date: 20141002
  Serious: Yes (Hospitalization, Other)
  Sender: FDA-Public Use
  Company Number: US-ROCHE-1340281

PATIENT
  Sex: Male

DRUGS (2)
  1. LUCENTIS [Suspect]
     Indication: PRODUCT USED FOR UNKNOWN INDICATION
     Dosage: OD (RIGHT EYE)
     Route: 065
     Dates: start: 20131212
  2. LUCENTIS [Suspect]
     Dosage: OS (LEFT EYE)
     Route: 065
     Dates: start: 20131216

REACTIONS (3)
  - Diabetic microangiopathy [Unknown]
  - Toe amputation [Unknown]
  - Dialysis [Unknown]
